FAERS Safety Report 19158151 (Version 3)
Quarter: 2021Q2

REPORT INFORMATION
  Report Type: Spontaneous
  Country: US (occurrence: US)
  Receive Date: 20210420
  Receipt Date: 20210616
  Transmission Date: 20210717
  Serious: Yes (Other)
  Sender: FDA-Public Use
  Company Number: US-SA-2021SA129361

PATIENT
  Age: 20 Year
  Sex: Female

DRUGS (6)
  1. DUPIXENT [Suspect]
     Active Substance: DUPILUMAB
     Indication: DERMATITIS
     Dosage: 300 MG
     Route: 058
     Dates: start: 20210225
  2. TRIAMCINOLONE [Concomitant]
     Active Substance: TRIAMCINOLONE
  3. DUPIXENT [Suspect]
     Active Substance: DUPILUMAB
     Indication: DERMATITIS ATOPIC
  4. LEXAPRO [Concomitant]
     Active Substance: ESCITALOPRAM OXALATE
  5. CLOBETASOL [Concomitant]
     Active Substance: CLOBETASOL
  6. JUNEL [Concomitant]
     Active Substance: ETHINYL ESTRADIOL\NORETHINDRONE ACETATE

REACTIONS (6)
  - Syncope [Not Recovered/Not Resolved]
  - Eye swelling [Unknown]
  - Conjunctivitis [Unknown]
  - Periorbital swelling [Unknown]
  - Product use in unapproved indication [Unknown]
  - Eye pruritus [Unknown]

NARRATIVE: CASE EVENT DATE: 2021
